FAERS Safety Report 7371014-7 (Version None)
Quarter: 2011Q1

REPORT INFORMATION
  Report Type: 
  Country: None (occurrence: None)
  Receive Date: 20110321
  Receipt Date: 20110321
  Transmission Date: 20110831
  Serious: Yes (Hospitalization)
  Sender: FDA-Public Use
  Company Number: None

PATIENT
  Age: 68 Year
  Sex: Female
  Weight: 58.9676 kg

DRUGS (1)
  1. BONIVA [Suspect]
     Indication: OSTEOPOROSIS
     Dosage: 1 PILL 1/MONTH PO
     Route: 048
     Dates: start: 20110221, end: 20110320

REACTIONS (13)
  - LETHARGY [None]
  - HEART RATE INCREASED [None]
  - POISONING [None]
  - SYNCOPE [None]
  - PRODUCT QUALITY ISSUE [None]
  - DIZZINESS [None]
  - CHEST PAIN [None]
  - DRY MOUTH [None]
  - HEADACHE [None]
  - PYREXIA [None]
  - OEDEMA PERIPHERAL [None]
  - NAUSEA [None]
  - LIP SWELLING [None]
